FAERS Safety Report 15130207 (Version 2)
Quarter: 2018Q3

REPORT INFORMATION
  Report Type: Spontaneous
  Country: RU (occurrence: RU)
  Receive Date: 20180711
  Receipt Date: 20180724
  Transmission Date: 20181010
  Serious: Yes (Other)
  Sender: FDA-Public Use
  Company Number: RU-ROCHE-2152133

PATIENT
  Age: 67 Year
  Sex: Female

DRUGS (4)
  1. CARBOPLATIN. [Suspect]
     Active Substance: CARBOPLATIN
     Indication: BREAST CANCER
     Route: 065
     Dates: start: 20180627
  2. DOCETAXEL. [Suspect]
     Active Substance: DOCETAXEL
     Indication: BREAST CANCER
     Route: 065
     Dates: start: 20180627
  3. HERCEPTIN [Suspect]
     Active Substance: TRASTUZUMAB
     Indication: BREAST CANCER
     Route: 065
     Dates: start: 20180628
  4. PERJETA [Suspect]
     Active Substance: PERTUZUMAB
     Indication: BREAST CANCER
     Route: 065
     Dates: start: 20180626

REACTIONS (21)
  - Skin ulcer [Unknown]
  - Abdominal pain lower [Unknown]
  - Insomnia [Unknown]
  - Weight decreased [Not Recovered/Not Resolved]
  - Pruritus [Unknown]
  - Aphonia [Unknown]
  - Myalgia [Unknown]
  - Diarrhoea [Recovered/Resolved]
  - Vomiting [Unknown]
  - Mouth ulceration [Unknown]
  - Ageusia [Unknown]
  - Dehydration [Unknown]
  - Nasal ulcer [Unknown]
  - Syncope [Unknown]
  - Nausea [Unknown]
  - Ulcer [Unknown]
  - Arthralgia [Unknown]
  - Asthenia [Unknown]
  - Decreased appetite [Unknown]
  - Rash [Not Recovered/Not Resolved]
  - Abdominal pain upper [Unknown]

NARRATIVE: CASE EVENT DATE: 20180630
